FAERS Safety Report 18094391 (Version 7)
Quarter: 2020Q4

REPORT INFORMATION
  Report Type: Report from Study
  Country: PL (occurrence: PL)
  Receive Date: 20200730
  Receipt Date: 20201112
  Transmission Date: 20210113
  Serious: Yes (Life-Threatening, Hospitalization)
  Sender: FDA-Public Use
  Company Number: PL-ROCHE-2649770

PATIENT
  Age: 40 Year
  Sex: Male
  Weight: 116 kg

DRUGS (28)
  1. OCRELIZUMAB. [Suspect]
     Active Substance: OCRELIZUMAB
     Dosage: WEEK 144
     Route: 042
     Dates: start: 20170829, end: 20170829
  2. OCRELIZUMAB. [Suspect]
     Active Substance: OCRELIZUMAB
     Dosage: WEEK 216
     Route: 042
     Dates: start: 20190111, end: 20190111
  3. AMERTIL [Concomitant]
     Active Substance: CETIRIZINE HYDROCHLORIDE
     Dosage: WEEK 0?SUBSEQUENT DOSES WERE RECEIVED ON 03/DEC/2014 (WEEK 2), 07/MAY/2015 (WEEK 24), 20/OCT/2015 (W
     Dates: start: 20141120
  4. OCRELIZUMAB. [Suspect]
     Active Substance: OCRELIZUMAB
     Dosage: WEEK 2
     Route: 042
     Dates: start: 20141203, end: 20141203
  5. OCRELIZUMAB. [Suspect]
     Active Substance: OCRELIZUMAB
     Dosage: WEEK 48
     Route: 042
     Dates: start: 20151020, end: 20151020
  6. OCRELIZUMAB. [Suspect]
     Active Substance: OCRELIZUMAB
     Dosage: WEEK 264
     Route: 042
     Dates: start: 20191211, end: 20191211
  7. PARACETAMOL [Concomitant]
     Active Substance: ACETAMINOPHEN
     Dosage: WEEK 0?SUBSEQUENT DOSES WERE RECEIVED ON 03/DEC/2014 (WEEK 2), 07/MAY/2015 (WEEK 24), 20/OCT/2015 (W
     Dates: start: 20141120
  8. METHYLPREDNISOLONE. [Concomitant]
     Active Substance: METHYLPREDNISOLONE
     Dosage: WEEK 1?SUBSEQUENT DOSES WERE RECEIVED ON 17/JAN/2013 (WEEK 2), 20/JUN/2013 (WEEK 24), 05/DEC/2013 (W
     Dates: start: 20130103
  9. OCRELIZUMAB. [Suspect]
     Active Substance: OCRELIZUMAB
     Indication: RELAPSING-REMITTING MULTIPLE SCLEROSIS
     Dosage: WEEK 0?300 MG INFUSIONS ON DAYS 1 AND 15 FOR THE FIRST DOSE AND AS A SINGLE INFUSION OF 600 MG FOR A
     Route: 042
     Dates: start: 20141120, end: 20141120
  10. OCRELIZUMAB. [Suspect]
     Active Substance: OCRELIZUMAB
     Dosage: WEEK 24
     Route: 042
     Dates: start: 20150507, end: 20150507
  11. OCRELIZUMAB. [Suspect]
     Active Substance: OCRELIZUMAB
     Dosage: WEEK 120
     Route: 042
     Dates: start: 20170313, end: 20170313
  12. AMERTIL [Concomitant]
     Active Substance: CETIRIZINE HYDROCHLORIDE
     Dosage: WEEK 1?SUBSEQUENT DOSES WERE RECEIVED ON 17/JAN/2013 (WEEK 2), 20/JUN/2013 (WEEK 24), 05/DEC/2013 (W
     Dates: start: 20130103
  13. PLACEBO [Suspect]
     Active Substance: UNSPECIFIED INGREDIENT
     Indication: RELAPSING-REMITTING MULTIPLE SCLEROSIS
     Dosage: SUBSEQUENT DOSE: 06/NOV/2014?LAST DOSE PRIOR TO SAE: 15/NOV/2014
     Route: 058
     Dates: start: 20130103
  14. OCRELIZUMAB. [Suspect]
     Active Substance: OCRELIZUMAB
     Dosage: WEEK 240
     Route: 042
     Dates: start: 20190702, end: 20190702
  15. PARACETAMOL [Concomitant]
     Active Substance: ACETAMINOPHEN
     Dosage: WEEK 1?SUBSEQUENT DOSES WERE RECEIVED ON 17/JAN/2013 (WEEK 2), 20/JUN/2013 (WEEK 24), 05/DEC/2013 (W
     Dates: start: 20130103
  16. OCRELIZUMAB. [Suspect]
     Active Substance: OCRELIZUMAB
     Dosage: WEEK 24
     Route: 042
     Dates: start: 20130620, end: 20130620
  17. METHYLPREDNISOLONE. [Concomitant]
     Active Substance: METHYLPREDNISOLONE
     Dosage: WEEK 0?SUBSEQUENT DOSES WERE RECEIVED ON 03/DEC/2014 (WEEK 2), 07/MAY/2015 (WEEK 24), 20/OCT/2015 (W
     Dates: start: 20141120
  18. OCRELIZUMAB. [Suspect]
     Active Substance: OCRELIZUMAB
     Dosage: WEEK 72
     Route: 042
     Dates: start: 20140520, end: 20140520
  19. OCRELIZUMAB. [Suspect]
     Active Substance: OCRELIZUMAB
     Dosage: WEEK 168
     Route: 042
     Dates: start: 20180212, end: 20180212
  20. OCRELIZUMAB. [Suspect]
     Active Substance: OCRELIZUMAB
     Dosage: WEEK 192
     Route: 042
     Dates: start: 20180726, end: 20180726
  21. PYRALGIN (POLAND) [Concomitant]
     Indication: PYREXIA
     Dates: start: 20200717, end: 20200724
  22. OCRELIZUMAB. [Suspect]
     Active Substance: OCRELIZUMAB
     Indication: RELAPSING-REMITTING MULTIPLE SCLEROSIS
     Dosage: WEEK 1?DUAL INFUSIONS ON DAYS 1 AND 15 FOR THE FIRST DOSE AND AS A SINGLE INFUSION FOR ALL SUBSEQUEN
     Route: 042
     Dates: start: 20130103, end: 20130103
  23. OCRELIZUMAB. [Suspect]
     Active Substance: OCRELIZUMAB
     Dosage: WEEK 96
     Route: 042
     Dates: start: 20160920, end: 20160920
  24. OCRELIZUMAB. [Suspect]
     Active Substance: OCRELIZUMAB
     Dosage: WEEK 288
     Route: 042
     Dates: start: 20200526, end: 20200526
  25. OCRELIZUMAB. [Suspect]
     Active Substance: OCRELIZUMAB
     Dosage: WEEK 2
     Route: 042
     Dates: start: 20130117, end: 20130117
  26. OCRELIZUMAB. [Suspect]
     Active Substance: OCRELIZUMAB
     Dosage: WEEK 48
     Route: 042
     Dates: start: 20131205, end: 20131205
  27. OCRELIZUMAB. [Suspect]
     Active Substance: OCRELIZUMAB
     Dosage: WEEK 72
     Route: 042
     Dates: start: 20160404, end: 20160404
  28. IBUPROM MAX [Concomitant]
     Indication: PYREXIA
     Dates: start: 20200717, end: 20200724

REACTIONS (1)
  - Pyrexia [Recovered/Resolved]

NARRATIVE: CASE EVENT DATE: 20200724
